FAERS Safety Report 23876393 (Version 1)
Quarter: 2024Q2

REPORT INFORMATION
  Report Type: Spontaneous
  Country: IN (occurrence: IN)
  Receive Date: 20240520
  Receipt Date: 20240520
  Transmission Date: 20240716
  Serious: Yes (Death, Hospitalization)
  Sender: FDA-Public Use
  Company Number: IN-PFIZER INC-PV202400064951

PATIENT
  Age: 46 Year
  Sex: Female

DRUGS (1)
  1. INOTUZUMAB OZOGAMICIN [Suspect]
     Active Substance: INOTUZUMAB OZOGAMICIN
     Dosage: 1 MG
     Route: 042
     Dates: start: 20230623

REACTIONS (2)
  - Death [Fatal]
  - Dyspnoea [Unknown]
